FAERS Safety Report 8387298-2 (Version None)
Quarter: 2012Q2

REPORT INFORMATION
  Report Type: 
  Country: None (occurrence: None)
  Receive Date: 20120525
  Receipt Date: 20120524
  Transmission Date: 20120825
  Serious: Yes (Other)
  Sender: FDA-Public Use
  Company Number: CN-ROCHE-1071758

PATIENT
  Sex: Male

DRUGS (2)
  1. CELLCEPT [Suspect]
     Indication: RENAL TRANSPLANT
     Route: 048
     Dates: start: 20080125, end: 20091001
  2. TACROLIMUS [Concomitant]
     Indication: RENAL TRANSPLANT

REACTIONS (1)
  - RENAL GRAFT LOSS [None]
